FAERS Safety Report 9088314 (Version 1)
Quarter: 2013Q1

REPORT INFORMATION
  Report Type: Spontaneous
  Country: US (occurrence: US)
  Receive Date: 20130218
  Receipt Date: 20130218
  Transmission Date: 20140127
  Serious: No
  Sender: FDA-Public Use
  Company Number: US-ABBOTT-12P-163-0995027-00

PATIENT
  Age: 65 Year
  Sex: Female

DRUGS (2)
  1. SIMCOR 1000/20 [Suspect]
     Indication: BLOOD CHOLESTEROL ABNORMAL
     Dates: start: 20121011
  2. SIMCOR 1000/20 [Suspect]
     Indication: BLOOD TRIGLYCERIDES ABNORMAL

REACTIONS (1)
  - Fatigue [Unknown]
